FAERS Safety Report 10690701 (Version 1)
Quarter: 2015Q1

REPORT INFORMATION
  Report Type: Spontaneous
  Country: GB (occurrence: GB)
  Receive Date: 20150105
  Receipt Date: 20150105
  Transmission Date: 20150720
  Serious: Yes (Hospitalization)
  Sender: FDA-Public Use
  Company Number: GB-TEVA-531738ISR

PATIENT
  Sex: Female
  Weight: 44.5 kg

DRUGS (7)
  1. ALENDRONIC ACID [Concomitant]
     Active Substance: ALENDRONIC ACID
     Dates: start: 20000901
  2. ETANERCEPT [Suspect]
     Active Substance: ETANERCEPT
     Dates: start: 20110530
  3. THIAMINE [Concomitant]
     Active Substance: THIAMINE
     Dates: start: 19950101
  4. CISPLATIN. [Suspect]
     Active Substance: CISPLATIN
  5. CALCICHEW D3 [Concomitant]
     Active Substance: CALCIUM\CHOLECALCIFEROL
  6. DICLOFENAC [Concomitant]
     Active Substance: DICLOFENAC
     Dates: start: 20110202
  7. FELODIPINE. [Concomitant]
     Active Substance: FELODIPINE
     Dates: start: 19950101

REACTIONS (5)
  - Dizziness [Unknown]
  - Haemoglobin decreased [Unknown]
  - Malaise [Unknown]
  - Blood magnesium decreased [Unknown]
  - Acute myocardial infarction [Unknown]
